FAERS Safety Report 15779087 (Version 1)
Quarter: 2019Q1

REPORT INFORMATION
  Report Type: Report from Study
  Country: RU (occurrence: RU)
  Receive Date: 20190101
  Receipt Date: 20190101
  Transmission Date: 20190417
  Serious: Yes (Hospitalization)
  Sender: FDA-Public Use
  Company Number: PHHO2018RU013564

PATIENT
  Age: 20 Year
  Sex: Female
  Weight: 60 kg

DRUGS (4)
  1. GILENYA [Suspect]
     Active Substance: FINGOLIMOD HYDROCHLORIDE
     Dosage: 1 MG, QD
     Route: 048
     Dates: start: 20180727
  2. PLACEBO [Suspect]
     Active Substance: UNSPECIFIED INGREDIENT
     Indication: MULTIPLE SCLEROSIS
     Dosage: UNK
     Route: 048
  3. INTERFERON BETA 1A [Suspect]
     Active Substance: INTERFERON BETA-1A
     Indication: MULTIPLE SCLEROSIS
     Dosage: 30 UG, UNK
     Route: 030
  4. GILENYA [Suspect]
     Active Substance: FINGOLIMOD HYDROCHLORIDE
     Indication: MULTIPLE SCLEROSIS
     Dosage: 1 MG, QD
     Route: 048
     Dates: start: 20170620, end: 20180715

REACTIONS (1)
  - Meningioma [Recovered/Resolved]

NARRATIVE: CASE EVENT DATE: 20180712
